FAERS Safety Report 7492566-2 (Version None)
Quarter: 2011Q2

REPORT INFORMATION
  Report Type: 
  Country: None (occurrence: None)
  Receive Date: 20110519
  Receipt Date: 20110420
  Transmission Date: 20111010
  Serious: No
  Sender: FDA-Public Use
  Company Number: US-BAYER-2011-035493

PATIENT
  Sex: Male
  Weight: 109 kg

DRUGS (3)
  1. BAYER EXTRA STRENGTH BACK + BODY PAIN [Concomitant]
     Indication: BACK PAIN
     Dosage: UNK
  2. ALEVE (CAPLET) [Suspect]
     Indication: ARTHRITIS
     Dosage: 2 DF, BID
     Route: 048
  3. ALEVE (CAPLET) [Suspect]
     Indication: NERVE COMPRESSION

REACTIONS (1)
  - PAIN [None]
